FAERS Safety Report 5696513-5 (Version None)
Quarter: 2008Q2

REPORT INFORMATION
  Report Type: 
  Country: None (occurrence: None)
  Receive Date: 20080408
  Receipt Date: 20080328
  Transmission Date: 20081010
  Serious: Yes (Hospitalization)
  Sender: FDA-Public Use
  Company Number: FR-JNJFOC-20080400152

PATIENT
  Age: 50 Year
  Sex: Female

DRUGS (3)
  1. DOXORUBICIN HCL [Suspect]
     Route: 042
  2. DOXORUBICIN HCL [Suspect]
     Indication: OVARIAN CANCER
     Dosage: 60MG DOSE TOTAL
     Route: 042
  3. ZOPHREN [Suspect]
     Indication: PREMEDICATION
     Route: 042

REACTIONS (3)
  - ERYTHEMA [None]
  - FEELING HOT [None]
  - INFUSION RELATED REACTION [None]
